FAERS Safety Report 25017650 (Version 1)
Quarter: 2025Q1

REPORT INFORMATION
  Report Type: Report from Study
  Country: US (occurrence: US)
  Receive Date: 20250227
  Receipt Date: 20250227
  Transmission Date: 20250409
  Serious: No
  Sender: Day One Biopharmaceuticals
  Company Number: US-Day One Biopharmaceuticals Inc.-2025US000157

PATIENT

DRUGS (5)
  1. OJEMDA [Suspect]
     Active Substance: TOVORAFENIB
     Indication: Optic nerve neoplasm
     Route: 048
     Dates: start: 20241221
  2. OJEMDA [Suspect]
     Active Substance: TOVORAFENIB
     Indication: Glioma
     Route: 065
     Dates: start: 202502
  3. BACTRIM [Concomitant]
     Active Substance: SULFAMETHOXAZOLE\TRIMETHOPRIM
     Indication: Product used for unknown indication
     Route: 065
  4. CHLORHEXIDINE [Concomitant]
     Active Substance: CHLORHEXIDINE
     Route: 065
  5. CLARITIN [Concomitant]
     Active Substance: LORATADINE
     Route: 065

REACTIONS (2)
  - Blood creatine phosphokinase increased [Unknown]
  - Product administration error [Unknown]

NARRATIVE: CASE EVENT DATE: 20250201
